FAERS Safety Report 11868793 (Version 1)
Quarter: 2015Q4

REPORT INFORMATION
  Report Type: Spontaneous
  Country: CH (occurrence: CH)
  Receive Date: 20151225
  Receipt Date: 20151225
  Transmission Date: 20160305
  Serious: Yes (Life-Threatening, Hospitalization)
  Sender: FDA-Public Use
  Company Number: CH-ROCHE-1684386

PATIENT
  Age: 85 Year
  Sex: Female

DRUGS (1)
  1. LUCENTIS [Suspect]
     Active Substance: RANIBIZUMAB
     Indication: NEOVASCULAR AGE-RELATED MACULAR DEGENERATION
     Route: 050

REACTIONS (1)
  - Myocardial infarction [Recovering/Resolving]

NARRATIVE: CASE EVENT DATE: 20151112
